FAERS Safety Report 9267605 (Version 2)
Quarter: 2014Q2

REPORT INFORMATION
  Report Type: Report from Study
  Country: US (occurrence: US)
  Receive Date: 20130502
  Receipt Date: 20140428
  Transmission Date: 20141212
  Serious: Yes (Hospitalization)
  Sender: FDA-Public Use
  Company Number: US-ALEXION-A201200711

PATIENT
  Age: 39 Year
  Sex: Female

DRUGS (6)
  1. SOLIRIS [Suspect]
     Indication: PAROXYSMAL NOCTURNAL HAEMOGLOBINURIA
     Dosage: UNK
  2. HEPARIN [Concomitant]
     Indication: PRODUCT USED FOR UNKNOWN INDICATION
  3. BENADRYL                           /00000402/ [Concomitant]
     Indication: RASH
  4. BENADRYL                           /00000402/ [Concomitant]
     Indication: PREMEDICATION
  5. TYLENOL                            /00020001/ [Concomitant]
     Indication: PREMEDICATION
  6. CORTISONE [Concomitant]
     Indication: PRURITUS

REACTIONS (10)
  - Dyspnoea [Unknown]
  - Embolism [Recovered/Resolved]
  - Rash erythematous [Unknown]
  - Pruritus [Unknown]
  - Chest pain [Unknown]
  - Activities of daily living impaired [Unknown]
  - Pain [Unknown]
  - Fatigue [Unknown]
  - Pain in extremity [Unknown]
  - Headache [Recovered/Resolved]
